FAERS Safety Report 11279666 (Version 4)
Quarter: 2015Q3

REPORT INFORMATION
  Report Type: Report from Study
  Country: US (occurrence: US)
  Receive Date: 20150717
  Receipt Date: 20150929
  Transmission Date: 20151125
  Serious: Yes (Disabling, Other)
  Sender: FDA-Public Use
  Company Number: US-SA-2015SA100232

PATIENT
  Age: 34 Year
  Sex: Female

DRUGS (2)
  1. LEMTRADA [Suspect]
     Active Substance: ALEMTUZUMAB
     Indication: MULTIPLE SCLEROSIS
     Route: 041
     Dates: start: 20150615, end: 20150619
  2. GLUCOSAMINE [Concomitant]
     Active Substance: GLUCOSAMINE

REACTIONS (24)
  - Immunodeficiency [Unknown]
  - Disorganised speech [Unknown]
  - Myalgia [Unknown]
  - Stress [Unknown]
  - Fine motor skill dysfunction [Unknown]
  - Hyperhidrosis [Unknown]
  - Acne [Unknown]
  - Hyperhidrosis [Unknown]
  - Feeling abnormal [Unknown]
  - Dyskinesia [Unknown]
  - Anxiety [Unknown]
  - Lymphocyte count abnormal [Unknown]
  - Oral herpes [Unknown]
  - Pain [Not Recovered/Not Resolved]
  - Contusion [Unknown]
  - Cerebrovascular accident [Unknown]
  - Hyperaesthesia [Unknown]
  - Back pain [Unknown]
  - Muscle contractions involuntary [Unknown]
  - Pain of skin [Unknown]
  - Disability [Unknown]
  - Rash [Recovered/Resolved]
  - Memory impairment [Unknown]
  - Tenderness [Unknown]

NARRATIVE: CASE EVENT DATE: 2015
